FAERS Safety Report 4968413-7 (Version None)
Quarter: 2006Q2

REPORT INFORMATION
  Report Type: 
  Country: None (occurrence: None)
  Receive Date: 20060410
  Receipt Date: 20050930
  Transmission Date: 20061013
  Serious: Yes (Other)
  Sender: FDA-Public Use
  Company Number: US-MERCK-0510USA01476

PATIENT
  Age: 74 Year
  Sex: Male
  Weight: 83 kg

DRUGS (5)
  1. VIOXX [Suspect]
     Indication: PAIN
     Route: 048
  2. LIPITOR [Concomitant]
     Route: 065
  3. TOPROL-XL [Concomitant]
     Route: 065
  4. ASPIRIN [Concomitant]
     Route: 065
  5. IMDUR [Concomitant]
     Route: 065

REACTIONS (13)
  - ANGINA UNSTABLE [None]
  - BACK PAIN [None]
  - CARDIAC DISORDER [None]
  - CARDIAC MURMUR [None]
  - CARDIOVASCULAR DISORDER [None]
  - CEREBROVASCULAR ACCIDENT [None]
  - HYPERCHOLESTEROLAEMIA [None]
  - LIVER DISORDER [None]
  - MULTI-ORGAN DISORDER [None]
  - MYOCARDIAL INFARCTION [None]
  - PULMONARY EMBOLISM [None]
  - RENAL DISORDER [None]
  - SHOULDER PAIN [None]
